FAERS Safety Report 9944717 (Version 1)
Quarter: 2014Q1

REPORT INFORMATION
  Report Type: Report from Study
  Country: US (occurrence: US)
  Receive Date: 20140303
  Receipt Date: 20140303
  Transmission Date: 20141002
  Serious: No
  Sender: FDA-Public Use
  Company Number: US-ABBVIE-13P-163-1055032-00

PATIENT
  Age: 74 Year
  Sex: Male

DRUGS (16)
  1. HUMIRA [Suspect]
     Indication: PSORIASIS
     Dates: start: 20130215, end: 20130215
  2. HUMIRA [Suspect]
     Dates: start: 20130222
  3. CRESTOR [Concomitant]
     Indication: BLOOD CHOLESTEROL
     Dosage: AT NIGHT
  4. ATENOLOL [Concomitant]
     Indication: HYPERTENSION
  5. MAXZIDE [Concomitant]
     Indication: DIURETIC THERAPY
     Dosage: 1/2-TABLET (75/50 MG) IN THE MORNING
  6. ZOLOFT [Concomitant]
     Indication: ANXIETY
  7. PROTONIX [Concomitant]
     Indication: PRODUCT USED FOR UNKNOWN INDICATION
  8. TRICOR [Concomitant]
     Indication: BLOOD CHOLESTEROL INCREASED
     Dosage: IN THE MORNING
  9. KLOR-CON [Concomitant]
     Indication: PRODUCT USED FOR UNKNOWN INDICATION
  10. EYE CAPS PILL [Concomitant]
     Indication: NUTRITIONAL SUPPLEMENTATION
  11. FISH OIL [Concomitant]
     Indication: PRODUCT USED FOR UNKNOWN INDICATION
  12. CITRUCEL [Concomitant]
     Indication: PRODUCT USED FOR UNKNOWN INDICATION
     Dosage: DAILY
  13. ASPIRIN [Concomitant]
     Indication: PRODUCT USED FOR UNKNOWN INDICATION
     Dosage: DAILY
  14. RYTHMOL [Concomitant]
     Indication: HEART RATE INCREASED
  15. CLOBETASOL [Concomitant]
     Indication: PSORIASIS
  16. DOVONEX [Concomitant]
     Indication: PSORIASIS
     Dosage: ALTERNATE WITH CLOBEX SPRAY

REACTIONS (3)
  - Device malfunction [Unknown]
  - Injection site haemorrhage [Recovered/Resolved]
  - Incorrect dose administered [Unknown]
